FAERS Safety Report 5339101-2 (Version None)
Quarter: 2007Q2

REPORT INFORMATION
  Report Type: 
  Country: None (occurrence: None)
  Receive Date: 20070330
  Receipt Date: 20061212
  Transmission Date: 20071010
  Serious: Yes (Other)
  Sender: FDA-Public Use
  Company Number: PHEH2006US15274

PATIENT
  Age: 59 Year
  Sex: Female

DRUGS (1)
  1. VIVELLE-DOT [Suspect]
     Indication: HORMONE REPLACEMENT THERAPY
     Dosage: 0.075 MG/DAY, WEEKLY, TRANSDERMAL
     Route: 062
     Dates: start: 19950101

REACTIONS (3)
  - BREAST CYST [None]
  - DEPRESSED MOOD [None]
  - NERVOUSNESS [None]
